FAERS Safety Report 22613225 (Version 7)
Quarter: 2023Q4

REPORT INFORMATION
  Report Type: Report from Study
  Country: US (occurrence: US)
  Receive Date: 20230618
  Receipt Date: 20231019
  Transmission Date: 20240110
  Serious: Yes (Hospitalization, Other)
  Sender: FDA-Public Use
  Company Number: US-ABBVIE-5290647

PATIENT
  Sex: Female

DRUGS (4)
  1. IMBRUVICA [Suspect]
     Active Substance: IBRUTINIB
     Indication: Chronic lymphocytic leukaemia
     Route: 048
     Dates: start: 20221115, end: 20230608
  2. IMBRUVICA [Suspect]
     Active Substance: IBRUTINIB
     Indication: Chronic lymphocytic leukaemia
     Route: 048
     Dates: start: 202211, end: 202211
  3. IMBRUVICA [Suspect]
     Active Substance: IBRUTINIB
     Indication: Chronic lymphocytic leukaemia
     Route: 048
  4. IMBRUVICA [Suspect]
     Active Substance: IBRUTINIB
     Indication: Chronic lymphocytic leukaemia
     Route: 048
     Dates: start: 20230612

REACTIONS (10)
  - Skin laceration [Unknown]
  - Road traffic accident [Recovering/Resolving]
  - Wound haematoma [Recovering/Resolving]
  - Fatigue [Unknown]
  - Gait inability [Unknown]
  - Bipolar disorder [Unknown]
  - Dysstasia [Not Recovered/Not Resolved]
  - Asthenia [Unknown]
  - Unevaluable event [Unknown]
  - Blood iron decreased [Unknown]
